FAERS Safety Report 13269873 (Version 2)
Quarter: 2017Q2

REPORT INFORMATION
  Report Type: Spontaneous
  Country: US (occurrence: US)
  Receive Date: 20170224
  Receipt Date: 20170413
  Transmission Date: 20170830
  Serious: No
  Sender: FDA-Public Use
  Company Number: US-TAIHO ONCOLOGY INC-EU-2017-00323

PATIENT
  Sex: Female
  Weight: 60.33 kg

DRUGS (6)
  1. SYNTHROID [Concomitant]
     Active Substance: LEVOTHYROXINE SODIUM
     Route: 048
  2. ATORVASTATIN [Concomitant]
     Active Substance: ATORVASTATIN
     Dosage: AT BEDTIME
     Route: 048
  3. JANUMET [Concomitant]
     Active Substance: METFORMIN HYDROCHLORIDE\SITAGLIPTIN PHOSPHATE
  4. HYDROCHLOROTHIAZIDE/BENAZEPRIL [Concomitant]
  5. HYDROCHLOROTHIAZIDE/BENAZEPRIL [Concomitant]
  6. LONSURF [Suspect]
     Active Substance: TIPIRACIL HYDROCHLORIDE\TRIFLURIDINE
     Indication: COLON CANCER METASTATIC
     Route: 048
     Dates: start: 20170118

REACTIONS (15)
  - Oral disorder [Unknown]
  - Epistaxis [Not Recovered/Not Resolved]
  - Thrombocytopenia [Unknown]
  - Somnolence [Unknown]
  - Limb discomfort [Not Recovered/Not Resolved]
  - Hypertension [Not Recovered/Not Resolved]
  - Fatigue [Not Recovered/Not Resolved]
  - Abdominal rigidity [Unknown]
  - Neuropathy peripheral [Recovering/Resolving]
  - Abdominal pain upper [Unknown]
  - Musculoskeletal stiffness [Unknown]
  - Diabetes mellitus [Not Recovered/Not Resolved]
  - Vomiting [Not Recovered/Not Resolved]
  - Nausea [Not Recovered/Not Resolved]
  - Rheumatoid arthritis [Unknown]

NARRATIVE: CASE EVENT DATE: 2017
